FAERS Safety Report 6401661-8 (Version None)
Quarter: 2009Q4

REPORT INFORMATION
  Report Type: 
  Country: None (occurrence: None)
  Receive Date: 20091015
  Receipt Date: 20091008
  Transmission Date: 20100525
  Serious: Yes (Hospitalization)
  Sender: FDA-Public Use
  Company Number: FR-SP-2009-04232

PATIENT
  Sex: Male

DRUGS (1)
  1. IMMUCYST [Suspect]
     Indication: DRUG USE FOR UNKNOWN INDICATION
     Route: 043

REACTIONS (4)
  - ENDOCARDITIS [None]
  - PROSTATITIS [None]
  - PYELONEPHRITIS [None]
  - PYREXIA [None]
